FAERS Safety Report 8374830-8 (Version None)
Quarter: 2012Q2

REPORT INFORMATION
  Report Type: 
  Country: None (occurrence: None)
  Receive Date: 20120521
  Receipt Date: 20120517
  Transmission Date: 20120825
  Serious: Yes (Death)
  Sender: FDA-Public Use
  Company Number: JP-B.I. PHARMACEUTICALS,INC./RIDGEFIELD-2012-BP-09200NB

PATIENT
  Sex: Male
  Weight: 55 kg

DRUGS (2)
  1. NORVASC [Concomitant]
     Dosage: 5 MG
     Route: 065
     Dates: start: 20051208, end: 20111008
  2. PRADAXA [Suspect]
     Dosage: 220 MG
     Route: 048
     Dates: start: 20110519, end: 20111008

REACTIONS (1)
  - DEATH [None]
